FAERS Safety Report 8616322-4 (Version None)
Quarter: 2012Q3

REPORT INFORMATION
  Report Type: 
  Country: None (occurrence: None)
  Receive Date: 20120809
  Receipt Date: 20120725
  Transmission Date: 20120928
  Serious: Yes (Death, Life-Threatening, Hospitalization, Other)
  Sender: FDA-Public Use
  Company Number: 2012MA009101

PATIENT
  Age: 25 Year
  Sex: Female

DRUGS (9)
  1. KADIAN [Suspect]
  2. PIPERACILLIN AND TAZOBACTAM [Concomitant]
  3. TRIMETHOPRIM + SULFAMETHOXAZOLE [Concomitant]
  4. SALICYLATES - OPIODS [Suspect]
  5. ETHANOL [Suspect]
  6. DIAZEPAM [Suspect]
  7. AMPICILLIN [Concomitant]
  8. ACETAMINOPHEN AND DIPHENHYDRAMINE HYDROCHLORIDE [Suspect]
  9. COCAINE [Suspect]

REACTIONS (25)
  - BLOOD FIBRINOGEN INCREASED [None]
  - ALCOHOL USE [None]
  - LACERATION [None]
  - SUICIDE ATTEMPT [None]
  - INTERNATIONAL NORMALISED RATIO INCREASED [None]
  - DYSARTHRIA [None]
  - DEPRESSED LEVEL OF CONSCIOUSNESS [None]
  - PAIN [None]
  - HEPATOMEGALY [None]
  - BLOOD FIBRINOGEN DECREASED [None]
  - RENAL FAILURE [None]
  - HEPATORENAL SYNDROME [None]
  - PLEURAL EFFUSION [None]
  - TREATMENT NONCOMPLIANCE [None]
  - DRUG ABUSE [None]
  - ACIDOSIS [None]
  - ABDOMINAL PAIN [None]
  - INTENTIONAL SELF-INJURY [None]
  - GALLBLADDER DISORDER [None]
  - DIALYSIS [None]
  - VOMITING [None]
  - AGITATION [None]
  - BLOOD POTASSIUM INCREASED [None]
  - ELECTROLYTE IMBALANCE [None]
  - BLOOD GLUCOSE INCREASED [None]
